FAERS Safety Report 6698505-6 (Version None)
Quarter: 2010Q2

REPORT INFORMATION
  Report Type: 
  Country: None (occurrence: None)
  Receive Date: 20100427
  Receipt Date: 20100422
  Transmission Date: 20101027
  Serious: Yes (Other)
  Sender: FDA-Public Use
  Company Number: JP-BRACCO-003449

PATIENT
  Age: 58 Year
  Sex: Female

DRUGS (2)
  1. IOPAMIDOL [Suspect]
     Indication: ANGIOGRAM
     Route: 042
  2. IOPAMIDOL [Concomitant]
     Route: 042

REACTIONS (1)
  - STEVENS-JOHNSON SYNDROME [None]
